FAERS Safety Report 17971552 (Version 2)
Quarter: 2020Q3

REPORT INFORMATION
  Report Type: Report from Study
  Country: JP (occurrence: JP)
  Receive Date: 20200701
  Receipt Date: 20200803
  Transmission Date: 20201103
  Serious: Yes (Other)
  Sender: FDA-Public Use
  Company Number: JP-INCYTE CORPORATION-2019IN008892

PATIENT

DRUGS (16)
  1. JAKAVI [Suspect]
     Active Substance: RUXOLITINIB
     Dosage: 5 MG, BID
     Route: 048
     Dates: start: 20170214
  2. CYMERIN [Concomitant]
     Active Substance: RANIMUSTINE
     Dosage: 50 MG, UNK
     Route: 065
     Dates: start: 20180327, end: 20180327
  3. CYMERIN [Concomitant]
     Active Substance: RANIMUSTINE
     Dosage: 50 MG, UNK
     Route: 065
     Dates: start: 20181214, end: 20181214
  4. CYMERIN [Concomitant]
     Active Substance: RANIMUSTINE
     Dosage: 50 MG, UNK
     Route: 065
     Dates: start: 20190423, end: 20190423
  5. CYMERIN [Concomitant]
     Active Substance: RANIMUSTINE
     Dosage: 50 MG, UNK
     Route: 065
     Dates: start: 20181016, end: 20181016
  6. CYMERIN [Concomitant]
     Active Substance: RANIMUSTINE
     Dosage: 50 MG, UNK
     Route: 065
     Dates: start: 20190129, end: 20190129
  7. CYMERIN [Concomitant]
     Active Substance: RANIMUSTINE
     Dosage: 50 MG, UNK
     Route: 065
     Dates: start: 20190716, end: 20190716
  8. FEBURIC [Suspect]
     Active Substance: FEBUXOSTAT
     Dosage: 20 MG
     Route: 048
     Dates: start: 20191007
  9. CYMERIN [Concomitant]
     Active Substance: RANIMUSTINE
     Dosage: 50 MG, UNK
     Route: 065
     Dates: start: 20180130, end: 20180130
  10. CYMERIN [Concomitant]
     Active Substance: RANIMUSTINE
     Dosage: 50 MG, UNK
     Route: 065
     Dates: start: 20180626, end: 20180626
  11. JAKAVI [Suspect]
     Active Substance: RUXOLITINIB
     Indication: POLYCYTHAEMIA VERA
     Dosage: 10 MG, BID
     Route: 048
     Dates: start: 20170131, end: 20170214
  12. CYMERIN [Concomitant]
     Active Substance: RANIMUSTINE
     Dosage: 50 MG, UNK
     Route: 065
     Dates: start: 20171107, end: 20171107
  13. FEBURIC [Suspect]
     Active Substance: FEBUXOSTAT
     Indication: PRODUCT USED FOR UNKNOWN INDICATION
     Dosage: 20 MG
     Route: 048
     Dates: start: 20170214, end: 20190916
  14. CYMERIN [Concomitant]
     Active Substance: RANIMUSTINE
     Indication: PLATELET COUNT ABNORMAL
     Dosage: 50 MG, UNK
     Route: 065
     Dates: start: 20170515, end: 20170515
  15. CYMERIN [Concomitant]
     Active Substance: RANIMUSTINE
     Dosage: 50 MG, UNK
     Route: 065
     Dates: start: 20180821, end: 20180821
  16. CYMERIN [Concomitant]
     Active Substance: RANIMUSTINE
     Dosage: 100 MG
     Route: 065
     Dates: start: 20191111, end: 20191111

REACTIONS (1)
  - Lymphopenia [Not Recovered/Not Resolved]

NARRATIVE: CASE EVENT DATE: 20190129
